FAERS Safety Report 10396956 (Version 1)
Quarter: 2014Q3

REPORT INFORMATION
  Report Type: Report from Study
  Country: DE (occurrence: DE)
  Receive Date: 20140820
  Receipt Date: 20140820
  Transmission Date: 20150326
  Serious: Yes (Hospitalization)
  Sender: FDA-Public Use
  Company Number: PHHO2014DE010631

PATIENT
  Sex: Female

DRUGS (3)
  1. DECORTIN [Suspect]
     Active Substance: PREDNISONE
     Indication: PANCREAS TRANSPLANT
     Dosage: 5 MG, UNK
     Route: 048
  2. MYCOPHENOLIC ACID [Suspect]
     Active Substance: MYCOPHENOLIC ACID
     Indication: PANCREAS TRANSPLANT
     Dosage: 1080 MG, UNK
     Route: 048
  3. PROGRAF [Suspect]
     Active Substance: TACROLIMUS\TACROLIMUS ANHYDROUS
     Indication: PANCREAS TRANSPLANT
     Dosage: 3 MG, UNK
     Route: 048
     Dates: start: 20130417

REACTIONS (1)
  - Vitreous prolapse [Recovered/Resolved]

NARRATIVE: CASE EVENT DATE: 20120320
